FAERS Safety Report 7423073-0 (Version None)
Quarter: 2011Q2

REPORT INFORMATION
  Report Type: 
  Country: None (occurrence: None)
  Receive Date: 20110411
  Receipt Date: 20110325
  Transmission Date: 20111010
  Serious: Yes (Hospitalization, Other)
  Sender: FDA-Public Use
  Company Number: DSJ-2010-22174

PATIENT
  Age: 69 Year
  Sex: Male

DRUGS (3)
  1. BENICAR [Suspect]
     Indication: HYPERTENSION
     Dosage: 20 MG (20 MG, 1 IN 1 D), PER ORAL
     Route: 048
     Dates: start: 20080101
  2. ROSUVASTATIN [Concomitant]
  3. OXCARBAZEPINE [Concomitant]

REACTIONS (2)
  - FALL [None]
  - SYMPHYSIOLYSIS [None]
